FAERS Safety Report 11437668 (Version 1)
Quarter: 2015Q3

REPORT INFORMATION
  Report Type: Spontaneous
  Country: US (occurrence: US)
  Receive Date: 20150821
  Receipt Date: 20150821
  Transmission Date: 20151125
  Serious: Yes (Other)
  Sender: FDA-Public Use
  Company Number: US-ELI_LILLY_AND_COMPANY-US200705006261

PATIENT
  Age: 37 Year
  Sex: Female

DRUGS (7)
  1. CYMBALTA [Suspect]
     Active Substance: DULOXETINE HYDROCHLORIDE
     Indication: DEPRESSION
     Dosage: 60 MG, DAILY (1/D)
     Route: 048
     Dates: start: 200611
  2. CYMBALTA [Suspect]
     Active Substance: DULOXETINE HYDROCHLORIDE
     Dosage: 30 MG, DAILY (1/D)
     Route: 048
     Dates: start: 2007
  3. CYMBALTA [Suspect]
     Active Substance: DULOXETINE HYDROCHLORIDE
     Dosage: 10 MG, DAILY (1/D)
     Dates: start: 2007
  4. CYMBALTA [Suspect]
     Active Substance: DULOXETINE HYDROCHLORIDE
     Dosage: 1 MG, UNK
     Dates: start: 2007, end: 200705
  5. CYMBALTA [Suspect]
     Active Substance: DULOXETINE HYDROCHLORIDE
     Dosage: 5 MG, DAILY (1/D)
     Dates: start: 2007
  6. CYMBALTA [Suspect]
     Active Substance: DULOXETINE HYDROCHLORIDE
     Dosage: 20 MG, DAILY (1/D)
     Route: 048
     Dates: start: 2007
  7. CYMBALTA [Suspect]
     Active Substance: DULOXETINE HYDROCHLORIDE
     Dosage: 2 MG, DAILY (1/D)
     Dates: start: 2007

REACTIONS (1)
  - Drug withdrawal syndrome [Recovering/Resolving]

NARRATIVE: CASE EVENT DATE: 2007
